FAERS Safety Report 5034109-9 (Version None)
Quarter: 2006Q2

REPORT INFORMATION
  Report Type: 
  Country: None (occurrence: None)
  Receive Date: 20060626
  Receipt Date: 20060612
  Transmission Date: 20061013
  Serious: Yes (Other)
  Sender: FDA-Public Use
  Company Number: GB-JNJFOC-20060604742

PATIENT
  Age: 56 Year
  Sex: Male

DRUGS (3)
  1. REMICADE [Suspect]
     Dosage: WEEK 6
     Route: 042
  2. REMICADE [Suspect]
     Dosage: WEEK 2
     Route: 042
  3. REMICADE [Suspect]
     Indication: PARAPSORIASIS
     Dosage: WEEK 0
     Route: 042

REACTIONS (2)
  - ANAPLASTIC LARGE CELL LYMPHOMA T- AND NULL-CELL TYPES [None]
  - LYMPHOMATOID PAPULOSIS [None]
